FAERS Safety Report 5298315-0 (Version None)
Quarter: 2007Q2

REPORT INFORMATION
  Report Type: 
  Country: None (occurrence: None)
  Receive Date: 20070409
  Receipt Date: 20070327
  Transmission Date: 20071010
  Serious: Yes (Other)
  Sender: FDA-Public Use
  Company Number: B0462966A

PATIENT
  Age: 53 Year
  Sex: Female

DRUGS (2)
  1. PAROXETINE HCL [Suspect]
     Dosage: 20 MG/SEE DOSAGE TEXT/ORAL
     Route: 048
  2. TRAMADOL HCL [Suspect]
     Dosage: 200 MG, SEE DOSAGE TEXT; ORAL
     Route: 048

REACTIONS (16)
  - AFFECT LABILITY [None]
  - BLOOD CREATINE PHOSPHOKINASE INCREASED [None]
  - BLOOD PRESSURE INCREASED [None]
  - BODY TEMPERATURE INCREASED [None]
  - CLONUS [None]
  - DELUSION OF GRANDEUR [None]
  - DRUG INTERACTION [None]
  - DYSARTHRIA [None]
  - GRAND MAL CONVULSION [None]
  - HYPERTONIA [None]
  - MANIA [None]
  - MYDRIASIS [None]
  - MYOCLONUS [None]
  - PRESSURE OF SPEECH [None]
  - SEROTONIN SYNDROME [None]
  - TACHYCARDIA [None]
